FAERS Safety Report 18203566 (Version 4)
Quarter: 2020Q4

REPORT INFORMATION
  Report Type: Report from Study
  Country: SG (occurrence: SG)
  Receive Date: 20200827
  Receipt Date: 20201118
  Transmission Date: 20210113
  Serious: Yes (Hospitalization)
  Sender: FDA-Public Use
  Company Number: NVSC2020SG233191

PATIENT
  Age: 62 Year
  Sex: Male
  Weight: 61.8 kg

DRUGS (6)
  1. RUXOLITINIB [Suspect]
     Active Substance: RUXOLITINIB
     Indication: COLON CANCER
     Dosage: 15 MG, BID
     Route: 048
     Dates: start: 20200723, end: 20200818
  2. XELOX [Concomitant]
     Active Substance: CAPECITABINE\OXALIPLATIN
     Indication: COLORECTAL CANCER
     Dosage: UNK
     Route: 065
     Dates: start: 201901, end: 201906
  3. FOLFIRI BEVACIZUMAB [Concomitant]
     Indication: COLORECTAL CANCER
     Dosage: UNK
     Route: 065
     Dates: start: 201911, end: 202003
  4. TRAMETINIB [Suspect]
     Active Substance: TRAMETINIB
     Indication: COLON CANCER
     Dosage: 2 MG
     Route: 048
     Dates: start: 20200707, end: 20200818
  5. FOLFIRI [Concomitant]
     Active Substance: FLUOROURACIL\IRINOTECAN\LEUCOVORIN
     Indication: COLORECTAL CANCER
     Dosage: UNK
     Route: 065
     Dates: start: 201906, end: 201911
  6. FAMOTIDINE. [Concomitant]
     Active Substance: FAMOTIDINE
     Indication: PRODUCT USED FOR UNKNOWN INDICATION
     Dosage: 20 MG FOR 10 DAYS
     Route: 048
     Dates: start: 20200824

REACTIONS (2)
  - Platelet count decreased [Recovered/Resolved]
  - Anaemia [Recovered/Resolved]

NARRATIVE: CASE EVENT DATE: 20200821
